FAERS Safety Report 8717136 (Version 2)
Quarter: 2012Q4

REPORT INFORMATION
  Report Type: 
  Country: DE (occurrence: IT)
  Receive Date: 20120810
  Receipt Date: 20121002
  Transmission Date: 20130627
  Serious: Yes (Life-Threatening)
  Sender: FDA-Public Use
  Company Number: IT-BRISTOL-MYERS SQUIBB COMPANY-16843898

PATIENT
  Age: 76 Year
  Sex: Male

DRUGS (2)
  1. ERBITUX SOLN FOR INF 5MG/ML [Suspect]
     Indication: COLON CANCER
     Route: 042
     Dates: start: 20120220, end: 20120319
  2. IRINOTECAN [Concomitant]
     Indication: COLON CANCER
     Dosage: 20 mg/ml
     Route: 042
     Dates: start: 20120220, end: 20120319

REACTIONS (3)
  - Transient ischaemic attack [Recovered/Resolved]
  - Confusional state [Recovered/Resolved]
  - Loss of consciousness [Recovered/Resolved]
